FAERS Safety Report 24167086 (Version 1)
Quarter: 2024Q3

REPORT INFORMATION
  Report Type: Spontaneous
  Country: US (occurrence: US)
  Receive Date: 20240802
  Receipt Date: 20240802
  Transmission Date: 20241017
  Serious: Yes (Other)
  Sender: BAYER
  Company Number: US-BAYER-2024A111093

PATIENT

DRUGS (1)
  1. ALEVE [Suspect]
     Active Substance: NAPROXEN SODIUM

REACTIONS (2)
  - Malaise [Unknown]
  - Suicidal behaviour [Unknown]
